FAERS Safety Report 25839231 (Version 4)
Quarter: 2025Q4

REPORT INFORMATION
  Report Type: Report from Study
  Country: US (occurrence: US)
  Receive Date: 20250924
  Receipt Date: 20251028
  Transmission Date: 20260117
  Serious: No
  Sender: ABBVIE
  Company Number: US-ABBVIE-6471844

PATIENT
  Age: 53 Year
  Sex: Female

DRUGS (15)
  1. QULIPTA [Suspect]
     Active Substance: ATOGEPANT
     Indication: Migraine
     Dosage: LAST ADMIN DATE SEP 2023
     Route: 048
     Dates: start: 20230906
  2. QULIPTA [Suspect]
     Active Substance: ATOGEPANT
     Indication: Migraine
     Route: 048
     Dates: start: 20230918, end: 202507
  3. UBRELVY [Suspect]
     Active Substance: UBROGEPANT
     Indication: Migraine
     Dosage: TIME INTERVAL: AS NECESSARY: 100MG/TAB
     Route: 048
     Dates: start: 202204
  4. RIZATRIPTAN [Concomitant]
     Active Substance: RIZATRIPTAN
     Indication: Migraine
     Dosage: TIME INTERVAL: AS NECESSARY: SINCE SHE WAS 16-17YO
     Dates: start: 1985
  5. TOPIRAMATE [Concomitant]
     Active Substance: TOPIRAMATE
     Indication: Seizure
     Route: 065
     Dates: start: 202201
  6. TOPIRAMATE [Concomitant]
     Active Substance: TOPIRAMATE
     Indication: Seizure
     Dosage: ON AND OFF
  7. CLONIDINE [Concomitant]
     Active Substance: CLONIDINE
     Indication: Hypertension
     Dates: start: 2020
  8. METOPROLOL [Concomitant]
     Active Substance: METOPROLOL
     Indication: Hypertension
     Dates: start: 2020
  9. OXYGEN [Concomitant]
     Active Substance: OXYGEN
     Indication: Post-acute COVID-19 syndrome
     Dates: start: 2021
  10. ALBUTEROL [Concomitant]
     Active Substance: ALBUTEROL
     Indication: Post-acute COVID-19 syndrome
     Dosage: AS NEEDED
     Dates: start: 2021
  11. SYMBICORT [Concomitant]
     Active Substance: BUDESONIDE\FORMOTEROL FUMARATE DIHYDRATE
     Indication: Post-acute COVID-19 syndrome
     Dates: start: 2021
  12. ALLOPURINOL [Concomitant]
     Active Substance: ALLOPURINOL
     Indication: Gout
     Dates: start: 2020
  13. KEPPRA [Concomitant]
     Active Substance: LEVETIRACETAM
     Indication: Seizure
     Dates: start: 202201
  14. IBUPROFEN [Suspect]
     Active Substance: IBUPROFEN
     Indication: Migraine
     Dosage: TIME INTERVAL: AS NECESSARY: ON AND OFF
     Route: 065
     Dates: start: 1985
  15. LEVETIRACETAM [Concomitant]
     Active Substance: LEVETIRACETAM
     Indication: Seizure

REACTIONS (3)
  - Chronic kidney disease [Recovering/Resolving]
  - Pre-existing condition improved [Unknown]
  - Therapeutic response unexpected [Unknown]

NARRATIVE: CASE EVENT DATE: 20230101
